FAERS Safety Report 9251747 (Version 1)
Quarter: 2013Q2

REPORT INFORMATION
  Report Type: Spontaneous
  Country: GB (occurrence: GB)
  Receive Date: 20130424
  Receipt Date: 20130424
  Transmission Date: 20140414
  Serious: Yes (Other)
  Sender: FDA-Public Use
  Company Number: GB-BAYER-2013-049633

PATIENT
  Age: 37 Year
  Sex: Female

DRUGS (2)
  1. MIRENA [Suspect]
     Dosage: 20 ?G/D, CONT
     Route: 015
  2. MIRENA [Suspect]
     Dosage: 20 ?G/D, CONT
     Route: 015

REACTIONS (12)
  - Device misuse [None]
  - Injury associated with device [None]
  - Post procedural haemorrhage [None]
  - Pain [None]
  - Malaise [None]
  - Pain in extremity [None]
  - Abdominal pain upper [None]
  - Pain [None]
  - Pain in extremity [None]
  - Uterine injury [None]
  - Anxiety [None]
  - Device physical property issue [None]
